FAERS Safety Report 9294337 (Version 1)
Quarter: 2013Q2

REPORT INFORMATION
  Report Type: Spontaneous
  Country: FR (occurrence: FR)
  Receive Date: 20130517
  Receipt Date: 20130517
  Transmission Date: 20140414
  Serious: Yes (Other)
  Sender: FDA-Public Use
  Company Number: FR-ROCHE-1224401

PATIENT
  Age: 22 Year
  Sex: Female
  Weight: 52 kg

DRUGS (5)
  1. RIVOTRIL [Suspect]
     Indication: EPILEPSY
     Route: 065
  2. GARDENAL [Concomitant]
  3. VIMPAT [Concomitant]
  4. KEPPRA [Concomitant]
  5. EPITOMAX [Concomitant]

REACTIONS (2)
  - Epilepsy [Recovered/Resolved]
  - Drug ineffective [Unknown]
